FAERS Safety Report 7094344-5 (Version None)
Quarter: 2010Q4

REPORT INFORMATION
  Report Type: 
  Country: None (occurrence: None)
  Receive Date: 20101110
  Receipt Date: 20101105
  Transmission Date: 20110411
  Serious: Yes (Other)
  Sender: FDA-Public Use
  Company Number: DE-SANOFI-AVENTIS-2010SA060983

PATIENT
  Sex: Female
  Weight: 95 kg

DRUGS (10)
  1. MULTAQ [Suspect]
     Indication: ATRIAL FIBRILLATION
     Route: 048
     Dates: start: 20100601
  2. PYROXIN [Concomitant]
     Route: 065
  3. PLAVIX [Concomitant]
     Route: 065
  4. ACETYLSALICYLIC ACID [Concomitant]
     Route: 065
  5. ENALAPRIL MALEATE [Concomitant]
     Route: 065
  6. HYDROCHLOROTHIAZIDE [Concomitant]
     Route: 065
  7. TORASEMIDE [Concomitant]
     Route: 065
  8. PRAVASTATIN [Concomitant]
     Route: 065
  9. TIOTROPIUM BROMIDE [Concomitant]
     Route: 065
  10. OMEPRAZOLE [Concomitant]
     Route: 065

REACTIONS (2)
  - ATRIAL FIBRILLATION [None]
  - TACHYARRHYTHMIA [None]
